FAERS Safety Report 4628230-4 (Version None)
Quarter: 2005Q2

REPORT INFORMATION
  Report Type: 
  Country: None (occurrence: None)
  Receive Date: 20050404
  Receipt Date: 20050322
  Transmission Date: 20051028
  Serious: Yes (Other)
  Sender: FDA-Public Use
  Company Number: 2004003166

PATIENT
  Age: 70 Year
  Sex: Male

DRUGS (2)
  1. PHENELZINE SULFATE (PHENELZINE SULFATE) [Suspect]
     Indication: DEPRESSION
     Dosage: 60 MG (1 IN 1 D), ORAL
     Route: 048
     Dates: end: 20040301
  2. DIAZEPAM [Concomitant]

REACTIONS (14)
  - CHEST PAIN [None]
  - DEPRESSION [None]
  - DIZZINESS [None]
  - DRUG EFFECT DECREASED [None]
  - EMOTIONAL DISORDER [None]
  - FEELING ABNORMAL [None]
  - HYPERHIDROSIS [None]
  - HYPOAESTHESIA [None]
  - MIGRAINE [None]
  - NIGHTMARE [None]
  - PANIC ATTACK [None]
  - PHARMACEUTICAL PRODUCT COMPLAINT [None]
  - VOMITING [None]
  - WEIGHT DECREASED [None]
